FAERS Safety Report 20883211 (Version 1)
Quarter: 2022Q2

REPORT INFORMATION
  Report Type: Spontaneous
  Country: US (occurrence: None)
  Receive Date: 20220526
  Receipt Date: 20220526
  Transmission Date: 20220721
  Serious: Yes (Hospitalization)
  Sender: FDA-Public Use
  Company Number: None

PATIENT
  Sex: Female

DRUGS (2)
  1. HUMIRA [Suspect]
     Active Substance: ADALIMUMAB
     Indication: Rheumatic disorder
     Dosage: OTHER QUANTITY : 40/0.4 MG/ML;?
     Route: 058
     Dates: start: 20220405
  2. HUMIRA [Suspect]
     Active Substance: ADALIMUMAB
     Indication: Myopathy

REACTIONS (1)
  - Surgery [None]
